FAERS Safety Report 6138024-9 (Version None)
Quarter: 2009Q1

REPORT INFORMATION
  Report Type: 
  Country: None (occurrence: None)
  Receive Date: 20090331
  Receipt Date: 20090130
  Transmission Date: 20090719
  Serious: Yes (Death)
  Sender: FDA-Public Use
  Company Number: US-TYCO HEALTHCARE/MALLINCKRODT-T200900466

PATIENT
  Age: 20 Month
  Sex: Female
  Weight: 13 kg

DRUGS (2)
  1. OXYCODONE HCL [Suspect]
     Route: 048
  2. HYDROCODONE BITARTRATE [Suspect]
     Route: 048

REACTIONS (7)
  - BRAIN HERNIATION [None]
  - BRONCHOPNEUMONIA [None]
  - CARDIO-RESPIRATORY ARREST [None]
  - CEREBRAL ISCHAEMIA [None]
  - DRUG TOXICITY [None]
  - MYOCARDIAL ISCHAEMIA [None]
  - UNRESPONSIVE TO STIMULI [None]
